FAERS Safety Report 5455054-0 (Version None)
Quarter: 2007Q3

REPORT INFORMATION
  Report Type: 
  Country: None (occurrence: None)
  Receive Date: 20070913
  Receipt Date: 20070903
  Transmission Date: 20080115
  Serious: Yes (Other)
  Sender: FDA-Public Use
  Company Number: 2007-01863

PATIENT
  Age: 62 Year
  Sex: Female
  Weight: 43 kg

DRUGS (8)
  1. VELCADE [Suspect]
     Indication: MULTIPLE MYELOMA
     Dosage: 1.30 MG/M2, INTRAVENOUS
     Route: 042
     Dates: start: 20070521, end: 20070531
  2. DEXAMETHASONE TAB [Suspect]
     Indication: MULTIPLE MYELOMA
     Dosage: 24.00 MG, INTRAVENOUS; 16 MG, INTRAVENOUS
     Route: 042
     Dates: start: 20070521, end: 20070525
  3. DEXAMETHASONE TAB [Suspect]
     Indication: MULTIPLE MYELOMA
     Dosage: 24.00 MG, INTRAVENOUS; 16 MG, INTRAVENOUS
     Route: 042
     Dates: start: 20070528, end: 20070601
  4. OMEPRAL               (OMEPRAZOLE) [Concomitant]
  5. ITRACONAZOLE [Concomitant]
  6. BAKTAR        (SULFAMETHOXAZOLE, TRIMETHOPRIM) [Concomitant]
  7. ALLOPURINOL [Concomitant]
  8. PLATELETS [Concomitant]

REACTIONS (8)
  - ALANINE AMINOTRANSFERASE INCREASED [None]
  - BLOOD CHLORIDE DECREASED [None]
  - CONDITION AGGRAVATED [None]
  - DIARRHOEA [None]
  - HYPOAESTHESIA [None]
  - HYPONATRAEMIA [None]
  - PLATELET COUNT DECREASED [None]
  - PYREXIA [None]
